FAERS Safety Report 22186580 (Version 1)
Quarter: 2023Q2

REPORT INFORMATION
  Report Type: Spontaneous
  Country: US (occurrence: None)
  Receive Date: 20230406
  Receipt Date: 20230406
  Transmission Date: 20230722
  Serious: No
  Sender: FDA-Public Use
  Company Number: None

PATIENT
  Age: 67 Year
  Sex: Male
  Weight: 71.67 kg

DRUGS (12)
  1. TEMOZOLOMIDE [Suspect]
     Active Substance: TEMOZOLOMIDE
     Indication: Brain neoplasm malignant
     Dosage: FREQUENCY : DAILY;?
     Route: 048
  2. ELIQUIS [Concomitant]
     Active Substance: APIXABAN
  3. KEPPRA [Concomitant]
     Active Substance: LEVETIRACETAM
  4. MIRTAZAPINE [Concomitant]
     Active Substance: MIRTAZAPINE
  5. MOBIC [Concomitant]
     Active Substance: MELOXICAM
  6. OXYCODONE [Concomitant]
     Active Substance: OXYCODONE
  7. PATNOPRAZOLE [Concomitant]
  8. REMERON [Concomitant]
     Active Substance: MIRTAZAPINE
  9. SAW PLAMETTO [Concomitant]
  10. BACTRIM [Concomitant]
     Active Substance: SULFAMETHOXAZOLE\TRIMETHOPRIM
  11. VITAMIN D3 [Concomitant]
     Active Substance: CHOLECALCIFEROL
  12. XTAMPZA ER [Concomitant]
     Active Substance: OXYCODONE

REACTIONS (2)
  - Malaise [None]
  - Therapy cessation [None]
